FAERS Safety Report 15510906 (Version 1)
Quarter: 2018Q4

REPORT INFORMATION
  Report Type: Spontaneous
  Country: US (occurrence: US)
  Receive Date: 20181016
  Receipt Date: 20181016
  Transmission Date: 20190205
  Serious: No
  Sender: FDA-Public Use
  Company Number: US-AMGEN-USASP2018032154

PATIENT
  Sex: Female

DRUGS (7)
  1. CARBOPLATIN. [Suspect]
     Active Substance: CARBOPLATIN
     Indication: NEOPLASM MALIGNANT
     Route: 065
  2. NOVOLOG [Concomitant]
     Active Substance: INSULIN ASPART
     Indication: DIABETES MELLITUS
     Dosage: UNK
  3. LEVEMIR [Concomitant]
     Active Substance: INSULIN DETEMIR
     Indication: DIABETES MELLITUS
     Dosage: UNK
  4. DEXAMETHASONE. [Concomitant]
     Active Substance: DEXAMETHASONE
     Indication: PREMEDICATION
     Dosage: UNK
  5. MEDROL [Concomitant]
     Active Substance: METHYLPREDNISOLONE
  6. NEULASTA [Suspect]
     Active Substance: PEGFILGRASTIM
     Indication: NEUTROPENIA
     Dosage: UNK UNK, AFTER CHEMO
     Route: 065
     Dates: start: 20180305
  7. TAXOTERE [Suspect]
     Active Substance: DOCETAXEL
     Indication: NEOPLASM MALIGNANT
     Dosage: UNK
     Route: 065

REACTIONS (17)
  - Stress [Unknown]
  - Arthralgia [Unknown]
  - Muscle spasms [Unknown]
  - Dizziness [Unknown]
  - Asthenia [Unknown]
  - Groin pain [Unknown]
  - Musculoskeletal pain [Recovering/Resolving]
  - Wrong technique in product usage process [Unknown]
  - Defaecation urgency [Unknown]
  - Back pain [Unknown]
  - Feeling abnormal [Unknown]
  - Adverse drug reaction [Unknown]
  - Headache [Unknown]
  - Diarrhoea [Unknown]
  - Abdominal pain [Unknown]
  - Hyperhidrosis [Unknown]
  - Application site pain [Recovering/Resolving]

NARRATIVE: CASE EVENT DATE: 20180305
